FAERS Safety Report 13995508 (Version 1)
Quarter: 2017Q3

REPORT INFORMATION
  Report Type: Spontaneous
  Country: KR (occurrence: KR)
  Receive Date: 20170921
  Receipt Date: 20170921
  Transmission Date: 20171128
  Serious: Yes (Other)
  Sender: FDA-Public Use
  Company Number: KR-CIPLA LTD.-2017KR17102

PATIENT

DRUGS (6)
  1. AMITRIPTYLINE [Suspect]
     Active Substance: AMITRIPTYLINE
     Indication: MAJOR DEPRESSION
     Dosage: 10 MG, PER DAY
     Route: 065
     Dates: start: 200208, end: 201305
  2. TRAZODONE [Suspect]
     Active Substance: TRAZODONE HYDROCHLORIDE
     Indication: MAJOR DEPRESSION
     Dosage: 25 MG, PER DAY
     Route: 065
     Dates: start: 200208, end: 201305
  3. LORAZEPAM. [Suspect]
     Active Substance: LORAZEPAM
     Indication: MAJOR DEPRESSION
     Dosage: 2 MG, PER DAY
     Route: 065
     Dates: start: 201304, end: 201305
  4. FLURAZEPAM [Concomitant]
     Active Substance: FLURAZEPAM\FLURAZEPAM HYDROCHLORIDE
     Indication: MAJOR DEPRESSION
     Dosage: 15-30 MG /DAY
     Route: 065
     Dates: start: 200208, end: 201305
  5. PROCYCLIDINE [Concomitant]
     Active Substance: PROCYCLIDINE
     Indication: MAJOR DEPRESSION
     Dosage: 5 MG, PER DAY
     Route: 065
     Dates: start: 201304
  6. BENZTROPINE [Suspect]
     Active Substance: BENZTROPINE
     Indication: MAJOR DEPRESSION
     Dosage: 2 MG, PER DAY
     Route: 065
     Dates: start: 201304, end: 201305

REACTIONS (1)
  - Tardive dyskinesia [Recovered/Resolved]
